FAERS Safety Report 14383042 (Version 30)
Quarter: 2021Q3

REPORT INFORMATION
  Report Type: Other
  Country: CA (occurrence: CA)
  Receive Date: 20180114
  Receipt Date: 20210902
  Transmission Date: 20211014
  Serious: Yes (Other)
  Sender: FDA-Public Use
  Company Number: CA-ROCHE-2052140

PATIENT
  Age: 88 Year
  Sex: Female

DRUGS (55)
  1. XOLAIR [Suspect]
     Active Substance: OMALIZUMAB
     Route: 058
     Dates: start: 20170731
  2. XOLAIR [Suspect]
     Active Substance: OMALIZUMAB
     Dosage: UNK
     Route: 058
     Dates: start: 20170828
  3. XOLAIR [Suspect]
     Active Substance: OMALIZUMAB
     Dosage: UNK
     Route: 058
     Dates: start: 20171218
  4. MOXIFLOXACIN. [Suspect]
     Active Substance: MOXIFLOXACIN
     Indication: CHEST DISCOMFORT
  5. PREDNISONE. [Concomitant]
     Active Substance: PREDNISONE
     Dosage: 3 TIMES
  6. XOLAIR [Suspect]
     Active Substance: OMALIZUMAB
     Route: 058
     Dates: start: 20180416
  7. XOLAIR [Suspect]
     Active Substance: OMALIZUMAB
     Route: 058
     Dates: start: 20180528
  8. XOLAIR [Suspect]
     Active Substance: OMALIZUMAB
     Route: 058
     Dates: start: 20190307
  9. XOLAIR [Suspect]
     Active Substance: OMALIZUMAB
     Indication: ASTHMA
     Route: 058
     Dates: start: 20150720
  10. XOLAIR [Suspect]
     Active Substance: OMALIZUMAB
     Route: 058
     Dates: start: 20170717
  11. XOLAIR [Suspect]
     Active Substance: OMALIZUMAB
     Route: 058
     Dates: start: 20180917
  12. XOLAIR [Suspect]
     Active Substance: OMALIZUMAB
     Route: 058
     Dates: start: 20190219
  13. XOLAIR [Suspect]
     Active Substance: OMALIZUMAB
     Route: 058
     Dates: start: 20190611
  14. XOLAIR [Suspect]
     Active Substance: OMALIZUMAB
     Route: 058
     Dates: start: 20191125
  15. XOLAIR [Suspect]
     Active Substance: OMALIZUMAB
     Route: 058
     Dates: start: 20210111
  16. PREDNISONE. [Concomitant]
     Active Substance: PREDNISONE
     Dates: start: 201707
  17. XOLAIR [Suspect]
     Active Substance: OMALIZUMAB
     Route: 058
     Dates: start: 20180322
  18. XOLAIR [Suspect]
     Active Substance: OMALIZUMAB
     Route: 058
     Dates: start: 2019
  19. XOLAIR [Suspect]
     Active Substance: OMALIZUMAB
     Route: 058
     Dates: start: 20190724
  20. XOLAIR [Suspect]
     Active Substance: OMALIZUMAB
     Route: 058
     Dates: start: 20190806
  21. XOLAIR [Suspect]
     Active Substance: OMALIZUMAB
     Route: 058
     Dates: start: 20191112
  22. XOLAIR [Suspect]
     Active Substance: OMALIZUMAB
     Route: 058
     Dates: start: 20200224
  23. RABEPRAZOLE [Concomitant]
     Active Substance: RABEPRAZOLE
     Indication: GASTROOESOPHAGEAL REFLUX DISEASE
     Dosage: 20 MG, QID
     Route: 048
     Dates: start: 20150612, end: 20150612
  24. PREDNISONE. [Concomitant]
     Active Substance: PREDNISONE
     Indication: VIRAL INFECTION
     Dates: start: 201611
  25. XOLAIR [Suspect]
     Active Substance: OMALIZUMAB
     Route: 058
     Dates: start: 20170619
  26. XOLAIR [Suspect]
     Active Substance: OMALIZUMAB
     Dosage: UNK
     Route: 058
     Dates: start: 20180430
  27. XOLAIR [Suspect]
     Active Substance: OMALIZUMAB
     Route: 058
     Dates: start: 20181029
  28. XOLAIR [Suspect]
     Active Substance: OMALIZUMAB
     Route: 058
     Dates: start: 20190107
  29. XOLAIR [Suspect]
     Active Substance: OMALIZUMAB
     Route: 058
     Dates: start: 20190205
  30. XOLAIR [Suspect]
     Active Substance: OMALIZUMAB
     Route: 058
     Dates: start: 20190709
  31. APO?ATORVASTATIN [Concomitant]
     Active Substance: ATORVASTATIN
     Indication: PRODUCT USED FOR UNKNOWN INDICATION
     Dosage: UNK
     Route: 065
  32. XOLAIR [Suspect]
     Active Substance: OMALIZUMAB
     Dosage: UNK
     Route: 058
     Dates: start: 20170424
  33. XOLAIR [Suspect]
     Active Substance: OMALIZUMAB
     Route: 058
     Dates: start: 20170523
  34. XOLAIR [Suspect]
     Active Substance: OMALIZUMAB
     Route: 058
     Dates: start: 20170605
  35. XOLAIR [Suspect]
     Active Substance: OMALIZUMAB
     Route: 058
     Dates: start: 20180402
  36. XOLAIR [Suspect]
     Active Substance: OMALIZUMAB
     Route: 058
     Dates: start: 20180904
  37. XOLAIR [Suspect]
     Active Substance: OMALIZUMAB
     Route: 058
     Dates: start: 20181224
  38. XOLAIR [Suspect]
     Active Substance: OMALIZUMAB
     Route: 058
     Dates: start: 20190401
  39. XOLAIR [Suspect]
     Active Substance: OMALIZUMAB
     Route: 058
     Dates: start: 20190416
  40. XOLAIR [Suspect]
     Active Substance: OMALIZUMAB
     Route: 058
     Dates: start: 20191029
  41. SYMBICORT [Concomitant]
     Active Substance: BUDESONIDE\FORMOTEROL FUMARATE DIHYDRATE
     Indication: PRODUCT USED FOR UNKNOWN INDICATION
     Dosage: 2 DF, BID
     Route: 065
  42. VENTOLIN [Concomitant]
     Active Substance: ALBUTEROL SULFATE
     Indication: ASTHMA
     Dosage: PRN
     Route: 055
  43. RABEPRAZOLE [Concomitant]
     Active Substance: RABEPRAZOLE
     Dosage: UNK, QID
     Route: 065
  44. ZITHROMAX [Concomitant]
     Active Substance: AZITHROMYCIN DIHYDRATE
     Indication: ASTHMA
     Dosage: UNK UNK, PRN
     Route: 055
  45. PREDNISONE. [Concomitant]
     Active Substance: PREDNISONE
     Indication: RESPIRATORY DISORDER
     Dates: start: 201706
  46. XOLAIR [Suspect]
     Active Substance: OMALIZUMAB
     Route: 058
     Dates: start: 201902
  47. XOLAIR [Suspect]
     Active Substance: OMALIZUMAB
     Route: 058
     Dates: start: 20190820
  48. XOLAIR [Suspect]
     Active Substance: OMALIZUMAB
     Route: 058
     Dates: start: 20200407
  49. MOXIFLOXACIN. [Suspect]
     Active Substance: MOXIFLOXACIN
     Indication: WHEEZING
     Route: 065
  50. SINGULAIR [Concomitant]
     Active Substance: MONTELUKAST SODIUM
     Indication: PRODUCT USED FOR UNKNOWN INDICATION
     Dosage: 1 DF, QD
     Route: 065
  51. PREDNISONE. [Concomitant]
     Active Substance: PREDNISONE
     Dates: start: 201807
  52. XOLAIR [Suspect]
     Active Substance: OMALIZUMAB
     Route: 058
     Dates: start: 20180514
  53. XOLAIR [Suspect]
     Active Substance: OMALIZUMAB
     Route: 058
     Dates: start: 20190107
  54. XOLAIR [Suspect]
     Active Substance: OMALIZUMAB
     Route: 058
     Dates: start: 20190318
  55. PREDNISONE. [Concomitant]
     Active Substance: PREDNISONE
     Dates: start: 201705

REACTIONS (33)
  - Wheezing [Unknown]
  - Nasal congestion [Recovering/Resolving]
  - Pulmonary embolism [Unknown]
  - Fall [Unknown]
  - Middle insomnia [Unknown]
  - Skin laceration [Unknown]
  - Forced expiratory volume decreased [Unknown]
  - Eye contusion [Unknown]
  - Asthma [Unknown]
  - Rales [Unknown]
  - Asthenia [Unknown]
  - Ear congestion [Not Recovered/Not Resolved]
  - Respiratory disorder [Unknown]
  - Heart rate increased [Unknown]
  - Sensitivity to weather change [Unknown]
  - Sleep disorder [Unknown]
  - Chest discomfort [Unknown]
  - Sinus congestion [Unknown]
  - Productive cough [Not Recovered/Not Resolved]
  - Sputum discoloured [Unknown]
  - Breath sounds abnormal [Unknown]
  - Hypertension [Unknown]
  - Cough [Not Recovered/Not Resolved]
  - Oropharyngeal pain [Unknown]
  - Drug hypersensitivity [Recovered/Resolved]
  - Swelling face [Recovered/Resolved]
  - Lower respiratory tract infection [Unknown]
  - Deep vein thrombosis [Unknown]
  - Blood pressure systolic increased [Not Recovered/Not Resolved]
  - Hypoacusis [Recovered/Resolved]
  - Body temperature decreased [Unknown]
  - Dyspnoea [Unknown]
  - Viral infection [Unknown]

NARRATIVE: CASE EVENT DATE: 201611
